FAERS Safety Report 8454170-9 (Version None)
Quarter: 2012Q2

REPORT INFORMATION
  Report Type: 
  Country: None (occurrence: None)
  Receive Date: 20120620
  Receipt Date: 20120611
  Transmission Date: 20120825
  Serious: Yes (Hospitalization)
  Sender: FDA-Public Use
  Company Number: US-ROCHE-1077714

PATIENT
  Sex: Female
  Weight: 57.204 kg

DRUGS (9)
  1. ZOFRAN [Concomitant]
  2. TEMSIROLIMUS [Suspect]
     Indication: RENAL CELL CARCINOMA
     Route: 042
     Dates: start: 20120501
  3. ATIVAN [Concomitant]
  4. OMEPRAZOLE [Concomitant]
  5. UREA CREAM [Concomitant]
  6. BACTRIM [Concomitant]
  7. AVASTIN [Suspect]
     Indication: RENAL CELL CARCINOMA
     Route: 042
     Dates: start: 20120501
  8. LEVOTHYROXINE SODIUM [Concomitant]
  9. BENZONATATE [Concomitant]

REACTIONS (3)
  - DYSPNOEA [None]
  - PAIN [None]
  - PNEUMOTHORAX [None]
